FAERS Safety Report 4311158-7 (Version None)
Quarter: 2004Q1

REPORT INFORMATION
  Report Type: 
  Country: None (occurrence: None)
  Receive Date: 20040302
  Receipt Date: 20040223
  Transmission Date: 20041129
  Serious: Yes (Hospitalization)
  Sender: FDA-Public Use
  Company Number: US-JNJFOC-20040205036

PATIENT
  Age: 63 Year
  Sex: Male

DRUGS (10)
  1. INFLIXIMAB (INFLIXIMAB, RECOMBINANT) LYOPHILIZED POWDER [Suspect]
     Indication: RHEUMATOID ARTHRITIS
     Dosage: INTRAVENOUS
     Route: 042
     Dates: start: 20000510
  2. PLAVIX [Concomitant]
  3. PREDNISONE [Concomitant]
  4. CLORCON (ALL OTHER THERAPEUTIC PRODUCTS) [Concomitant]
  5. METHOTREXATE [Concomitant]
  6. METOPROLOL (METOPROLOL) [Concomitant]
  7. LISINOPRIL [Concomitant]
  8. FOLIC ACID [Concomitant]
  9. FUROSEMIDE [Concomitant]
  10. LIPITOR [Concomitant]

REACTIONS (1)
  - CORONARY ARTERY DISEASE [None]
